FAERS Safety Report 12391926 (Version 1)
Quarter: 2016Q2

REPORT INFORMATION
  Report Type: Report from Study
  Country: CA (occurrence: CA)
  Receive Date: 20160523
  Receipt Date: 20160523
  Transmission Date: 20160815
  Serious: Yes (Other)
  Sender: FDA-Public Use
  Company Number: CA-JNJFOC-20160516267

PATIENT
  Age: 40 Year
  Sex: Female
  Weight: 57.5 kg

DRUGS (5)
  1. TYLENOL [Suspect]
     Active Substance: ACETAMINOPHEN
     Route: 048
  2. IRON [Concomitant]
     Active Substance: IRON
     Route: 048
     Dates: start: 20151210
  3. REMICADE [Suspect]
     Active Substance: INFLIXIMAB
     Indication: COLITIS ULCERATIVE
     Route: 042
     Dates: start: 20160127
  4. TYLENOL [Suspect]
     Active Substance: ACETAMINOPHEN
     Indication: PRODUCT USED FOR UNKNOWN INDICATION
     Route: 048
     Dates: start: 20160120, end: 20160127
  5. PENICILLIN NOS [Concomitant]
     Active Substance: PENICILLIN
     Indication: COLITIS
     Dosage: UNKNOWN IN HOSPITAL AT 16 WEEKS
     Route: 065
     Dates: start: 20160118, end: 20160123

REACTIONS (2)
  - Exposure during pregnancy [Not Recovered/Not Resolved]
  - Haemoglobin decreased [Unknown]

NARRATIVE: CASE EVENT DATE: 2016
